FAERS Safety Report 7951219-4 (Version None)
Quarter: 2011Q4

REPORT INFORMATION
  Report Type: 
  Country: None (occurrence: None)
  Receive Date: 20111201
  Receipt Date: 20111129
  Transmission Date: 20120403
  Serious: Yes (Death, Other)
  Sender: FDA-Public Use
  Company Number: PHHY2011PL94052

PATIENT
  Age: 67 Year
  Sex: Female

DRUGS (3)
  1. LETROZOLE [Suspect]
     Indication: BREAST CANCER
     Dosage: 1 DF, UNK
     Route: 048
     Dates: start: 20061114
  2. FLUOROURACIL [Concomitant]
  3. NAVELBINE [Concomitant]

REACTIONS (4)
  - METASTASES TO LIVER [None]
  - METASTASES TO SKIN [None]
  - DEATH [None]
  - METASTASES TO BONE [None]
